FAERS Safety Report 7956491-2 (Version None)
Quarter: 2011Q4

REPORT INFORMATION
  Report Type: 
  Country: None (occurrence: None)
  Receive Date: 20111205
  Receipt Date: 20111121
  Transmission Date: 20120403
  Serious: Yes (Other)
  Sender: FDA-Public Use
  Company Number: JP-RANBAXY-2011RR-49719

PATIENT
  Age: 42 Year
  Sex: Male

DRUGS (4)
  1. ASPIRIN [Suspect]
     Indication: ALLERGY TEST
     Dosage: 100 MG, SINGLE
     Route: 065
  2. ASPIRIN [Suspect]
     Dosage: 500 MG, SINGLE
     Route: 065
  3. IBUPROFEN [Suspect]
     Indication: HEADACHE
     Dosage: UNK
     Route: 065
  4. ASPIRIN [Suspect]
     Dosage: 500 MG, SINGLE
     Route: 065

REACTIONS (2)
  - REACTION TO FOOD ADDITIVE [None]
  - ANAPHYLACTIC REACTION [None]
